FAERS Safety Report 22639021 (Version 1)
Quarter: 2023Q2

REPORT INFORMATION
  Report Type: Spontaneous
  Country: CN (occurrence: CN)
  Receive Date: 20230626
  Receipt Date: 20230626
  Transmission Date: 20230722
  Serious: Yes (Other)
  Sender: FDA-Public Use
  Company Number: CN-AMGEN-CHNSP2023106500

PATIENT
  Age: 63 Year
  Sex: Male

DRUGS (3)
  1. FILGRASTIM [Suspect]
     Active Substance: FILGRASTIM
     Indication: Prophylaxis
     Dosage: 300 MICROGRAM, DAY 0-14
     Route: 065
  2. CYTARABINE [Concomitant]
     Active Substance: CYTARABINE
     Indication: Acute myeloid leukaemia
     Dosage: 10 MICROGRAM/SQ. METER, Q12H, FROM DAYS 1-14
  3. ACLARUBICIN [Concomitant]
     Active Substance: ACLARUBICIN
     Indication: Acute myeloid leukaemia
     Dosage: 10 MILLIGRAM , FROM DAYS 1-12

REACTIONS (3)
  - Acute respiratory distress syndrome [Unknown]
  - Acute coronary syndrome [Unknown]
  - Drug ineffective [Unknown]
